FAERS Safety Report 18776280 (Version 1)
Quarter: 2021Q1

REPORT INFORMATION
  Report Type: Spontaneous
  Country: US (occurrence: US)
  Receive Date: 20210123
  Receipt Date: 20210123
  Transmission Date: 20210419
  Serious: No
  Sender: FDA-Public Use
  Company Number: US-CADILA HEALTHCARE LIMITED-US-ZYDUS-059124

PATIENT
  Sex: Female

DRUGS (1)
  1. CHOLESTYRAMINE 4 GRAM SUSPENSION [Suspect]
     Active Substance: CHOLESTYRAMINE
     Indication: PRODUCT USED FOR UNKNOWN INDICATION
     Dosage: 2 GRAM, QD
     Route: 048

REACTIONS (2)
  - Product dose omission issue [Recovered/Resolved]
  - Product solubility abnormal [Recovered/Resolved]
